FAERS Safety Report 18093069 (Version 1)
Quarter: 2020Q3

REPORT INFORMATION
  Report Type: Report from Study
  Country: US (occurrence: US)
  Receive Date: 20200730
  Receipt Date: 20200730
  Transmission Date: 20201103
  Serious: Yes (Hospitalization)
  Sender: FDA-Public Use
  Company Number: US-JNJFOC-20200731851

PATIENT
  Age: 43 Year

DRUGS (8)
  1. STELARA [Suspect]
     Active Substance: USTEKINUMAB
     Indication: CROHN^S DISEASE
     Route: 058
     Dates: start: 20171219
  2. OXYCODONE [Concomitant]
     Active Substance: OXYCODONE
  3. STELARA [Suspect]
     Active Substance: USTEKINUMAB
  4. IMURAN [Concomitant]
     Active Substance: AZATHIOPRINE
  5. VITAMIN D3 [Concomitant]
     Active Substance: CHOLECALCIFEROL
  6. PENTASA [Concomitant]
     Active Substance: MESALAMINE
  7. ENOXAPARIN [Concomitant]
     Active Substance: ENOXAPARIN
  8. TRAMADOL HCL [Concomitant]
     Active Substance: TRAMADOL HYDROCHLORIDE

REACTIONS (3)
  - Off label use [Unknown]
  - Neoplasm malignant [Not Recovered/Not Resolved]
  - Product use issue [Unknown]

NARRATIVE: CASE EVENT DATE: 20171219
